FAERS Safety Report 15696199 (Version 1)
Quarter: 2018Q4

REPORT INFORMATION
  Report Type: Spontaneous
  Country: CZ (occurrence: CZ)
  Receive Date: 20181206
  Receipt Date: 20181206
  Transmission Date: 20190205
  Serious: Yes (Other)
  Sender: FDA-Public Use
  Company Number: CZ-PFM-2018-14172

PATIENT

DRUGS (4)
  1. AVASTIN [Suspect]
     Active Substance: BEVACIZUMAB
     Indication: LUNG ADENOCARCINOMA
     Dosage: 525 MG, 4 CYCLES
     Route: 065
     Dates: start: 2016, end: 201612
  2. CISPLATIN. [Suspect]
     Active Substance: CISPLATIN
     Indication: LUNG ADENOCARCINOMA
     Dosage: 490 MG, UNK
     Route: 065
     Dates: start: 2016
  3. VINORELBINE [Suspect]
     Active Substance: VINORELBINE\VINORELBINE TARTRATE
     Indication: LUNG ADENOCARCINOMA
     Dosage: 100 MG,
     Route: 065
     Dates: start: 2016, end: 201612
  4. AVASTIN [Suspect]
     Active Substance: BEVACIZUMAB
     Dosage: 487.5 MG, UNK
     Dates: start: 201701

REACTIONS (4)
  - Gastrointestinal toxicity [Unknown]
  - Hypertension [Recovered/Resolved]
  - Weight increased [Unknown]
  - Neutropenia [Unknown]

NARRATIVE: CASE EVENT DATE: 2016
